FAERS Safety Report 24901393 (Version 1)
Quarter: 2025Q1

REPORT INFORMATION
  Report Type: Report from Study
  Country: US (occurrence: US)
  Receive Date: 20250129
  Receipt Date: 20250129
  Transmission Date: 20250409
  Serious: Yes (Hospitalization, Other)
  Sender: ABBVIE
  Company Number: US-ABBVIE-6102414

PATIENT
  Age: 32 Year
  Sex: Male

DRUGS (1)
  1. SKYRIZI [Suspect]
     Active Substance: RISANKIZUMAB-RZAA
     Indication: Crohn^s disease
     Route: 058
     Dates: start: 20241016

REACTIONS (6)
  - Pyrexia [Unknown]
  - Dry skin [Unknown]
  - Rash pruritic [Unknown]
  - Tinnitus [Unknown]
  - Rash papular [Unknown]
  - Ileostomy [Unknown]

NARRATIVE: CASE EVENT DATE: 20241201
